FAERS Safety Report 25542557 (Version 1)
Quarter: 2025Q3

REPORT INFORMATION
  Report Type: Spontaneous
  Country: GB (occurrence: GB)
  Receive Date: 20250711
  Receipt Date: 20250711
  Transmission Date: 20251021
  Serious: Yes (Other)
  Sender: RANBAXY
  Company Number: GB-MHRA-MED-202506271009203440-NTJFL

PATIENT
  Age: 45 Year
  Sex: Male
  Weight: 86 kg

DRUGS (1)
  1. ESOMEPRAZOLE [Suspect]
     Active Substance: ESOMEPRAZOLE
     Indication: Functional gastrointestinal disorder
     Dosage: 40 MILLIGRAM, BID, 40 MG TWICE A DAY
     Route: 065

REACTIONS (2)
  - General physical health deterioration [Recovered/Resolved]
  - General physical health deterioration [Recovering/Resolving]

NARRATIVE: CASE EVENT DATE: 20250418
